FAERS Safety Report 7692819-9 (Version None)
Quarter: 2011Q3

REPORT INFORMATION
  Report Type: 
  Country: None (occurrence: None)
  Receive Date: 20110819
  Receipt Date: 20110809
  Transmission Date: 20111222
  Serious: No
  Sender: FDA-Public Use
  Company Number: US-ELI_LILLY_AND_COMPANY-US201108003268

PATIENT
  Sex: Female

DRUGS (1)
  1. BYETTA [Suspect]

REACTIONS (1)
  - RENAL IMPAIRMENT [None]
